FAERS Safety Report 5860250-4 (Version None)
Quarter: 2008Q3

REPORT INFORMATION
  Report Type: 
  Country: None (occurrence: None)
  Receive Date: 20080827
  Receipt Date: 20070814
  Transmission Date: 20090109
  Serious: No
  Sender: FDA-Public Use
  Company Number: US-ABBOTT-07P-163-0377775-00

PATIENT
  Sex: Male

DRUGS (2)
  1. COATED PDS [Suspect]
     Indication: BLOOD CHOLESTEROL INCREASED
     Dosage: 3-500 MG TABLETS @ HS
     Route: 048
     Dates: start: 20070806
  2. COATED PDS [Suspect]
     Route: 048
     Dates: start: 20070101, end: 20070806

REACTIONS (1)
  - FLUSHING [None]
